FAERS Safety Report 8484770-1 (Version None)
Quarter: 2012Q3

REPORT INFORMATION
  Report Type: 
  Country: None (occurrence: None)
  Receive Date: 20120703
  Receipt Date: 20120621
  Transmission Date: 20120928
  Serious: Yes (Hospitalization, Other)
  Sender: FDA-Public Use
  Company Number: IE-US-EMD SERONO, INC.-7028255

PATIENT
  Sex: Male

DRUGS (2)
  1. LEXYPROL (LEXAPRO) [Concomitant]
     Indication: DEPRESSION
     Route: 048
  2. REBIF [Suspect]
     Indication: RELAPSING-REMITTING MULTIPLE SCLEROSIS
     Route: 058
     Dates: start: 20040914

REACTIONS (9)
  - EPILEPSY [None]
  - FEELING ABNORMAL [None]
  - DEMENTIA ALZHEIMER'S TYPE [None]
  - IMPAIRED WORK ABILITY [None]
  - MOBILITY DECREASED [None]
  - CEREBRAL ATROPHY [None]
  - BALANCE DISORDER [None]
  - COGNITIVE DISORDER [None]
  - COUGH [None]
